FAERS Safety Report 8504298-X (Version None)
Quarter: 2012Q3

REPORT INFORMATION
  Report Type: 
  Country: None (occurrence: None)
  Receive Date: 20120711
  Receipt Date: 20120629
  Transmission Date: 20120928
  Serious: Yes (Other)
  Sender: FDA-Public Use
  Company Number: GB-FRI-1000036915

PATIENT
  Age: 61 Year
  Sex: Female

DRUGS (2)
  1. FLUCLOXACILLIN [Suspect]
     Indication: GASTROENTERITIS
  2. CITALOPRAM HYDROBROMIDE [Suspect]
     Indication: DEPRESSION
     Dosage: 10 MG
     Route: 048
     Dates: end: 20120601

REACTIONS (9)
  - DIARRHOEA [None]
  - MEMORY IMPAIRMENT [None]
  - HAEMATURIA [None]
  - FLATULENCE [None]
  - LIVER FUNCTION TEST ABNORMAL [None]
  - HEADACHE [None]
  - URINARY TRACT INFECTION [None]
  - SOMNOLENCE [None]
  - IMMUNOGLOBULINS INCREASED [None]
